FAERS Safety Report 21772379 (Version 2)
Quarter: 2023Q1

REPORT INFORMATION
  Report Type: Spontaneous
  Country: DE (occurrence: DE)
  Receive Date: 20221223
  Receipt Date: 20230202
  Transmission Date: 20230417
  Serious: Yes (Other)
  Sender: FDA-Public Use
  Company Number: DE-002147023-NVSC2022DE294500

PATIENT
  Age: 60 Year
  Sex: Female

DRUGS (1)
  1. XOLAIR [Suspect]
     Active Substance: OMALIZUMAB
     Indication: Product used for unknown indication
     Dosage: 450 MG, BIW
     Route: 065
     Dates: start: 202209

REACTIONS (3)
  - Blindness unilateral [Unknown]
  - Blood creatine phosphokinase increased [Unknown]
  - Headache [Unknown]

NARRATIVE: CASE EVENT DATE: 20221101
